FAERS Safety Report 12749263 (Version 1)
Quarter: 2016Q3

REPORT INFORMATION
  Report Type: Not Available
  Country: US (occurrence: US)
  Receive Date: 20160915
  Receipt Date: 20160915
  Transmission Date: 20161109
  Serious: Yes (Hospitalization, Other)
  Sender: FDA-Public Use
  Company Number: JP-WARNER CHILCOTT 2012-002108

PATIENT
  Age: 60 Year
  Sex: Female

DRUGS (33)
  1. ULTRAM [Concomitant]
     Active Substance: TRAMADOL HYDROCHLORIDE
  2. VERAPAMIL [Concomitant]
     Active Substance: VERAPAMIL HYDROCHLORIDE
  3. ACTONEL [Suspect]
     Active Substance: RISEDRONATE SODIUM
     Dates: start: 200208
  4. PREDNISONE. [Concomitant]
     Active Substance: PREDNISONE
  5. TESTOSTERONE. [Concomitant]
     Active Substance: TESTOSTERONE
  6. SYNTHROID [Concomitant]
     Active Substance: LEVOTHYROXINE SODIUM
  7. NASACORT [Concomitant]
     Active Substance: TRIAMCINOLONE ACETONIDE
  8. PREVACID [Concomitant]
     Active Substance: LANSOPRAZOLE
  9. DOXEPIN [Concomitant]
     Active Substance: DOXEPIN
  10. EFFEXOR XR [Concomitant]
     Active Substance: VENLAFAXINE HYDROCHLORIDE
  11. ECHINACEA [Concomitant]
     Active Substance: ECHINACEA, UNSPECIFIED
  12. TUMS [Concomitant]
     Active Substance: CALCIUM CARBONATE
  13. MAGNESIUM [Concomitant]
     Active Substance: MAGNESIUM
  14. TAMOXIFEN [Concomitant]
     Active Substance: TAMOXIFEN
     Dates: start: 2000, end: 2005
  15. MOBIC [Concomitant]
     Active Substance: MELOXICAM
  16. CLONIDINE. [Concomitant]
     Active Substance: CLONIDINE
  17. CALCIUM [Concomitant]
     Active Substance: CALCIUM
  18. AZMACORT [Concomitant]
     Active Substance: TRIAMCINOLONE ACETONIDE
  19. VITAMIN E [Concomitant]
     Active Substance: .ALPHA.-TOCOPHEROL
  20. OMEGA 3 [Concomitant]
     Active Substance: OMEGA-3 FATTY ACIDS
  21. CYMBALTA [Concomitant]
     Active Substance: DULOXETINE HYDROCHLORIDE
  22. ACTONEL [Suspect]
     Active Substance: RISEDRONATE SODIUM
     Indication: OSTEOPOROSIS
     Dates: start: 200402, end: 200602
  23. SINGULAIR [Concomitant]
     Active Substance: MONTELUKAST SODIUM
  24. MULTIVITAMIN [Concomitant]
     Active Substance: VITAMINS
  25. SEREVENT DISKUS [Concomitant]
     Active Substance: SALMETEROL XINAFOATE
  26. BEXTRA [Concomitant]
     Active Substance: VALDECOXIB
  27. NEXIUM [Concomitant]
     Active Substance: ESOMEPRAZOLE MAGNESIUM
  28. DITROPAN XL [Concomitant]
     Active Substance: OXYBUTYNIN CHLORIDE
  29. PULMICORT TURBUHALER [Concomitant]
     Active Substance: BUDESONIDE
  30. RHINOCORT AQUA [Concomitant]
     Active Substance: BUDESONIDE
  31. VITAMIN D [Concomitant]
     Active Substance: CHOLECALCIFEROL
  32. GLUCOSAMINE [Concomitant]
     Active Substance: GLUCOSAMINE
  33. CENTRUM SILVER [Concomitant]
     Active Substance: MINERALS\VITAMINS

REACTIONS (9)
  - Bone marrow oedema syndrome [None]
  - Low turnover osteopathy [None]
  - Pathological fracture [None]
  - Stress fracture [None]
  - Bone disorder [None]
  - Arthralgia [None]
  - Femur fracture [None]
  - Pain [None]
  - Pain in extremity [None]
